FAERS Safety Report 5771562-7 (Version None)
Quarter: 2008Q2

REPORT INFORMATION
  Report Type: 
  Country: None (occurrence: None)
  Receive Date: 20080613
  Receipt Date: 20080609
  Transmission Date: 20081010
  Serious: Yes (Hospitalization)
  Sender: FDA-Public Use
  Company Number: JP-AVENTIS-200811752JP

PATIENT

DRUGS (3)
  1. LANTUS [Suspect]
     Dosage: DOSE: 2 UNITS
     Route: 058
  2. UNKNOWN DRUG [Concomitant]
  3. RAPID ACTING INSULIN [Concomitant]

REACTIONS (2)
  - HYPOGLYCAEMIA [None]
  - ILEUS PARALYTIC [None]
